FAERS Safety Report 14973948 (Version 2)
Quarter: 2018Q3

REPORT INFORMATION
  Report Type: Spontaneous
  Country: US (occurrence: US)
  Receive Date: 20180605
  Receipt Date: 20180803
  Transmission Date: 20181010
  Serious: Yes (Other)
  Sender: FDA-Public Use
  Company Number: US-SA-2018SA073821

PATIENT
  Age: 50 Year
  Sex: Female
  Weight: 73 kg

DRUGS (25)
  1. DEXAMETHASONE. [Concomitant]
     Active Substance: DEXAMETHASONE
  2. XANAX [Concomitant]
     Active Substance: ALPRAZOLAM
  3. TAXOTERE [Suspect]
     Active Substance: DOCETAXEL
     Dosage: 130 MG, Q3W
     Route: 042
     Dates: start: 20120430, end: 20120430
  4. ONDANSETRON [Concomitant]
     Active Substance: ONDANSETRON
  5. FILGRASTIM [Concomitant]
     Active Substance: FILGRASTIM
  6. HERCEPTIN [Concomitant]
     Active Substance: TRASTUZUMAB
     Dosage: UNK
  7. TAXOTERE [Suspect]
     Active Substance: DOCETAXEL
     Indication: BREAST CANCER FEMALE
     Dosage: 113 MG, Q3W
     Route: 042
     Dates: start: 20120316, end: 20120316
  8. FLEXERIL [CEFIXIME] [Concomitant]
  9. NEOSAR [Concomitant]
     Active Substance: CYCLOPHOSPHAMIDE
  10. ALOXI [Concomitant]
     Active Substance: PALONOSETRON HYDROCHLORIDE
  11. LISINOPRIL. [Concomitant]
     Active Substance: LISINOPRIL
  12. ANASTROZOLE. [Concomitant]
     Active Substance: ANASTROZOLE
     Dosage: UNK
  13. CARVEDILOL. [Concomitant]
     Active Substance: CARVEDILOL
  14. NEUPOGEN [Concomitant]
     Active Substance: FILGRASTIM
  15. PALONOSETRON. [Concomitant]
     Active Substance: PALONOSETRON HYDROCHLORIDE
  16. GABAPENTIN. [Concomitant]
     Active Substance: GABAPENTIN
  17. LEVAQUIN [Concomitant]
     Active Substance: LEVOFLOXACIN
  18. FLUOROURACIL 5 FU [Concomitant]
     Active Substance: FLUOROURACIL
  19. CITALOPRAM [Concomitant]
     Active Substance: CITALOPRAM HYDROBROMIDE
  20. CYTOXAN [Concomitant]
     Active Substance: CYCLOPHOSPHAMIDE
  21. PROMETHAZINE [Concomitant]
     Active Substance: PROMETHAZINE\PROMETHAZINE HYDROCHLORIDE
  22. MELOXICAM. [Concomitant]
     Active Substance: MELOXICAM
  23. CYANOCOBALAMIN. [Concomitant]
     Active Substance: CYANOCOBALAMIN
  24. ELLENCE [Concomitant]
     Active Substance: EPIRUBICIN HYDROCHLORIDE
  25. ATORVASTATIN [Concomitant]
     Active Substance: ATORVASTATIN

REACTIONS (2)
  - Alopecia [Recovering/Resolving]
  - Psychological trauma [Unknown]

NARRATIVE: CASE EVENT DATE: 2012
